FAERS Safety Report 9999039 (Version 2)
Quarter: 2014Q1

REPORT INFORMATION
  Report Type: Spontaneous
  Country: US (occurrence: None)
  Receive Date: 20140310
  Receipt Date: 20140319
  Transmission Date: 20141002
  Serious: Yes (Other)
  Sender: FDA-Public Use
  Company Number: QSC-2014-0124

PATIENT
  Age: 26 Year
  Sex: Female

DRUGS (2)
  1. H.P. ACTHAR GEL [Suspect]
     Indication: MULTIPLE SCLEROSIS
     Dosage: UNK, 10 DAYS
     Route: 058
     Dates: start: 20140129, end: 20140203
  2. DIMETHYL  FUMARATE [Concomitant]

REACTIONS (2)
  - Central nervous system lesion [None]
  - Paraesthesia [None]
